FAERS Safety Report 6301224-9 (Version None)
Quarter: 2009Q3

REPORT INFORMATION
  Report Type: 
  Country: None (occurrence: None)
  Receive Date: 20090807
  Receipt Date: 20090731
  Transmission Date: 20100115
  Serious: Yes (Life-Threatening, Hospitalization, Other)
  Sender: FDA-Public Use
  Company Number: DE-ROXANE LABORATORIES, INC.-2009-RO-00766RO

PATIENT
  Age: 69 Year
  Sex: Female

DRUGS (15)
  1. CYCLOPHOSPHAMIDE [Suspect]
     Indication: SALIVARY GLAND CANCER
  2. DEXAMETHASONE [Suspect]
     Indication: PROPHYLAXIS OF NAUSEA AND VOMITING
  3. GRANISETRON HCL [Suspect]
     Indication: PROPHYLAXIS OF NAUSEA AND VOMITING
  4. CISPLATIN [Suspect]
     Indication: SALIVARY GLAND CANCER
  5. DOXORUBICIN HCL [Suspect]
     Indication: SALIVARY GLAND CANCER
  6. METAMIZOLE [Suspect]
     Indication: ANALGESIC THERAPY
  7. TILIDINE PLUS NALOXONE [Suspect]
     Indication: ANALGESIC THERAPY
  8. ISOTONIC SALINE [Suspect]
     Indication: PROPHYLAXIS AGAINST DEHYDRATION
  9. ELECTROLYTE [Suspect]
     Indication: PROPHYLAXIS AGAINST DEHYDRATION
  10. MESNA [Suspect]
  11. APREPITANT [Suspect]
     Indication: PROPHYLAXIS OF NAUSEA AND VOMITING
  12. DIMENHYDRINATE [Suspect]
     Indication: NAUSEA
  13. DIMENHYDRINATE [Suspect]
     Indication: DECREASED APPETITE
  14. GEMCITABINE [Concomitant]
     Indication: CHEMOTHERAPY
  15. HYPERTONIC SALINE [Concomitant]
     Indication: HYPONATRAEMIA

REACTIONS (6)
  - BLINDNESS UNILATERAL [None]
  - BLOOD OSMOLARITY DECREASED [None]
  - BLOOD POTASSIUM DECREASED [None]
  - FACIAL PAIN [None]
  - HYPONATRAEMIA [None]
  - NEOPLASM PROGRESSION [None]
